FAERS Safety Report 4396658-6 (Version None)
Quarter: 2004Q3

REPORT INFORMATION
  Report Type: 
  Country: None (occurrence: None)
  Receive Date: 20040713
  Receipt Date: 20040713
  Transmission Date: 20050211
  Serious: No
  Sender: FDA-Public Use
  Company Number: None

PATIENT
  Sex: Male
  Weight: 79.3795 kg

DRUGS (1)
  1. SERTRALINE HCL [Suspect]
     Indication: DEPRESSED MOOD
     Dosage: 150 MG DAILY

REACTIONS (1)
  - DIARRHOEA [None]
